FAERS Safety Report 9265987 (Version 2)
Quarter: 2013Q3

REPORT INFORMATION
  Report Type: Spontaneous
  Country: US (occurrence: US)
  Receive Date: 20130501
  Receipt Date: 20130911
  Transmission Date: 20140515
  Serious: Yes (Hospitalization)
  Sender: FDA-Public Use
  Company Number: US-B.I. PHARMACEUTICALS,INC./RIDGEFIELD-2013-BI-11935BP

PATIENT
  Sex: Male
  Weight: 95.25 kg

DRUGS (2)
  1. PRADAXA [Suspect]
     Indication: CEREBROVASCULAR ACCIDENT PROPHYLAXIS
     Dates: start: 20110317, end: 201108
  2. ASPIRIN [Concomitant]

REACTIONS (5)
  - Gastrointestinal haemorrhage [Unknown]
  - Haemorrhagic stroke [Unknown]
  - Cerebral haemorrhage [Unknown]
  - Epistaxis [Unknown]
  - Ischaemic stroke [Unknown]
